FAERS Safety Report 24605838 (Version 1)
Quarter: 2024Q4

REPORT INFORMATION
  Report Type: Report from Study
  Country: CN (occurrence: CN)
  Receive Date: 20241111
  Receipt Date: 20241111
  Transmission Date: 20250114
  Serious: Yes (Death, Hospitalization, Other)
  Sender: JOHNSON AND JOHNSON
  Company Number: CN-JNJFOC-20241109855

PATIENT
  Age: 82 Year
  Sex: Male
  Weight: 60 kg

DRUGS (6)
  1. ABIRATERONE ACETATE [Suspect]
     Active Substance: ABIRATERONE ACETATE
     Indication: Prostate cancer metastatic
     Dosage: QD
     Route: 048
     Dates: start: 20191014, end: 20210306
  2. PRUXELUTAMIDE [Suspect]
     Active Substance: PRUXELUTAMIDE
     Indication: Prostate cancer metastatic
     Route: 048
     Dates: start: 20191014, end: 20210306
  3. PREDNISONE ACETATE [Suspect]
     Active Substance: PREDNISONE ACETATE
     Indication: Prophylaxis
     Route: 048
     Dates: start: 20191014, end: 20210306
  4. LEUPROLIDE ACETATE [Concomitant]
     Active Substance: LEUPROLIDE ACETATE
     Indication: Prostate cancer
     Dates: start: 20190107
  5. AMLODIPINE BESYLATE [Concomitant]
     Active Substance: AMLODIPINE BESYLATE
     Indication: Hypertension
     Dosage: QD
     Route: 048
  6. GOSERELIN [Concomitant]
     Active Substance: GOSERELIN
     Indication: Prostate cancer
     Dates: start: 20190107

REACTIONS (26)
  - Pneumonia [Fatal]
  - Hypokalaemia [Unknown]
  - Prostate cancer [Unknown]
  - Renal failure [Not Recovered/Not Resolved]
  - Arrhythmia [Not Recovered/Not Resolved]
  - Hypertension [Unknown]
  - Pericardial effusion [Recovering/Resolving]
  - Arteriosclerosis coronary artery [Recovering/Resolving]
  - Muscular weakness [Unknown]
  - Upper respiratory tract infection [Unknown]
  - Alanine aminotransferase increased [Unknown]
  - Weight decreased [Unknown]
  - Asthenia [Unknown]
  - Decreased appetite [Unknown]
  - Dizziness [Not Recovered/Not Resolved]
  - Hyperlipidaemia [Not Recovered/Not Resolved]
  - Ventricular extrasystoles [Unknown]
  - Gait disturbance [Not Recovered/Not Resolved]
  - Nausea [Unknown]
  - Anaemia [Unknown]
  - Constipation [Not Recovered/Not Resolved]
  - Hypocalcaemia [Not Recovered/Not Resolved]
  - Hypoproteinaemia [Not Recovered/Not Resolved]
  - Emphysema [Recovering/Resolving]
  - Cardiomegaly [Recovering/Resolving]
  - Pleural effusion [Recovering/Resolving]

NARRATIVE: CASE EVENT DATE: 20191120
